FAERS Safety Report 17651118 (Version 1)
Quarter: 2020Q2

REPORT INFORMATION
  Report Type: Spontaneous
  Country: US (occurrence: US)
  Receive Date: 20200409
  Receipt Date: 20200409
  Transmission Date: 20200713
  Serious: Yes (Hospitalization)
  Sender: FDA-Public Use
  Company Number: None

PATIENT
  Age: 76 Year
  Sex: Male
  Weight: 89.36 kg

DRUGS (2)
  1. RITUXIMAB (RITUXIMAB 10MG/ML, VIL, 50ML) [Suspect]
     Active Substance: RITUXIMAB
     Indication: DIFFUSE LARGE B-CELL LYMPHOMA STAGE III
     Route: 042
     Dates: start: 20181015
  2. BENDAMUSTINE (BENDAMUSTINE HCL 100MG/VIL INJ) [Suspect]
     Active Substance: BENDAMUSTINE HYDROCHLORIDE
     Indication: DIFFUSE LARGE B-CELL LYMPHOMA STAGE III
     Dosage: ?          OTHER STRENGTH:100 MG/MIL;?
     Route: 042
     Dates: start: 20181015

REACTIONS (10)
  - Respiratory failure [None]
  - Odynophagia [None]
  - Lung infiltration [None]
  - Leukopenia [None]
  - Dysphagia [None]
  - Neutropenia [None]
  - Dyspnoea [None]
  - Failure to thrive [None]
  - Asthenia [None]
  - Decreased appetite [None]

NARRATIVE: CASE EVENT DATE: 20190104
